FAERS Safety Report 4496561-7 (Version None)
Quarter: 2004Q4

REPORT INFORMATION
  Report Type: 
  Country: None (occurrence: None)
  Receive Date: 20041109
  Receipt Date: 20041102
  Transmission Date: 20050328
  Serious: Yes (Hospitalization)
  Sender: FDA-Public Use
  Company Number: AU-JNJFOC-20041100720

PATIENT
  Age: 50 Year
  Sex: Male

DRUGS (2)
  1. TRAMAL SR [Suspect]
     Indication: SENSORY DISTURBANCE
     Route: 065
  2. DOTHIEPIN HYDROCHLORIDE [Interacting]
     Indication: DEPRESSION
     Route: 065

REACTIONS (5)
  - DRUG INTERACTION [None]
  - DYSKINESIA [None]
  - INSOMNIA [None]
  - MUSCLE TWITCHING [None]
  - NAUSEA [None]
